FAERS Safety Report 10175970 (Version 2)
Quarter: 2014Q3

REPORT INFORMATION
  Report Type: Spontaneous
  Country: US (occurrence: None)
  Receive Date: 20140425
  Receipt Date: 20140725
  Transmission Date: 20150326
  Serious: No
  Sender: FDA-Public Use
  Company Number: AP356-00490-SPO-US

PATIENT
  Age: 52 Year
  Sex: Male
  Weight: 99 kg

DRUGS (13)
  1. JANUMET [Concomitant]
     Active Substance: METFORMIN HYDROCHLORIDE\SITAGLIPTIN PHOSPHATE
  2. SYNTHROID [Concomitant]
     Active Substance: LEVOTHYROXINE SODIUM
  3. ASPIRIN (ACETYLSALICYLIC ACID) [Concomitant]
     Active Substance: ASPIRIN
  4. LANTUS [Concomitant]
     Active Substance: INSULIN GLARGINE
  5. BELVIQ [Suspect]
     Active Substance: LORCASERIN HYDROCHLORIDE
     Indication: WEIGHT DECREASED
     Dosage: 20 MG, 2 IN 1 D, ORAL
     Route: 048
     Dates: start: 20140214, end: 20140228
  6. NOVOLOG [Concomitant]
     Active Substance: INSULIN ASPART
  7. TRICOR [Concomitant]
     Active Substance: FENOFIBRATE
  8. LOVAZA (OMEGA-3 MARINE TRIGLYCERIDES) [Concomitant]
  9. COZAAR [Concomitant]
     Active Substance: LOSARTAN POTASSIUM
  10. CHLOROTHALIDONE (CHLORTALIDONE) [Concomitant]
  11. CRESTOR [Concomitant]
     Active Substance: ROSUVASTATIN CALCIUM
  12. CLARINEX [Concomitant]
     Active Substance: DESLORATADINE
  13. KLORACEF (CEFACLOR) [Concomitant]

REACTIONS (2)
  - Memory impairment [None]
  - Confusional state [None]

NARRATIVE: CASE EVENT DATE: 201402
